FAERS Safety Report 8372782-8 (Version None)
Quarter: 2012Q2

REPORT INFORMATION
  Report Type: 
  Country: None (occurrence: None)
  Receive Date: 20120521
  Receipt Date: 20120511
  Transmission Date: 20120825
  Serious: Yes (Other)
  Sender: FDA-Public Use
  Company Number: BR-PFIZER INC-2012116568

PATIENT
  Age: 73 Year
  Sex: Male
  Weight: 68.4 kg

DRUGS (1)
  1. XALATAN [Suspect]
     Indication: INTRAOCULAR PRESSURE INCREASED
     Dosage: 3 UG, UNSPECIFIED FREQUENCY
     Route: 047
     Dates: start: 20100101, end: 20120301

REACTIONS (2)
  - THYROID CANCER [None]
  - EYE INFLAMMATION [None]
